FAERS Safety Report 9249323 (Version 13)
Quarter: 2022Q3

REPORT INFORMATION
  Report Type: Spontaneous
  Country: CA (occurrence: CA)
  Receive Date: 20130423
  Receipt Date: 20220715
  Transmission Date: 20221027
  Serious: Yes (Death, Other)
  Sender: FDA-Public Use
  Company Number: CA-009507513-1304CAN013315

PATIENT
  Age: 3 Year
  Sex: Male

DRUGS (35)
  1. CANCIDAS [Suspect]
     Active Substance: CASPOFUNGIN ACETATE
     Indication: Antifungal prophylaxis
     Dosage: DOSE: 50 MG/M2/D
     Route: 042
  2. CANCIDAS [Suspect]
     Active Substance: CASPOFUNGIN ACETATE
     Indication: Product used for unknown indication
     Dosage: DOSAGE FORM: POWDER FOR
     Route: 065
  3. CANCIDAS [Suspect]
     Active Substance: CASPOFUNGIN ACETATE
     Dosage: UNK
     Route: 042
  4. CANCIDAS [Suspect]
     Active Substance: CASPOFUNGIN ACETATE
     Dosage: DOSAGE FORM: POWDER FOR
     Route: 065
  5. POSACONAZOLE [Suspect]
     Active Substance: POSACONAZOLE
     Indication: Central nervous system fungal infection
     Dosage: UNK
     Route: 065
  6. POSACONAZOLE [Suspect]
     Active Substance: POSACONAZOLE
     Indication: Aspergillus infection
     Dosage: UNK
     Route: 065
  7. AMPHOTERICIN B [Suspect]
     Active Substance: AMPHOTERICIN B
     Indication: Central nervous system fungal infection
     Route: 065
  8. AMPHOTERICIN B [Suspect]
     Active Substance: AMPHOTERICIN B
     Indication: Aspergillus infection
     Route: 065
  9. VORICONAZOLE [Suspect]
     Active Substance: VORICONAZOLE
     Indication: Central nervous system fungal infection
     Dosage: UNK
     Route: 065
  10. VORICONAZOLE [Suspect]
     Active Substance: VORICONAZOLE
     Indication: Aspergillus infection
     Dosage: UNK
     Route: 065
  11. CYCLOPHOSPHAMIDE [Suspect]
     Active Substance: CYCLOPHOSPHAMIDE
     Indication: Immunosuppressant drug therapy
     Dosage: STRENGTH: 2000 MG/ VIAL
     Route: 042
  12. CYCLOPHOSPHAMIDE [Suspect]
     Active Substance: CYCLOPHOSPHAMIDE
     Dosage: UNK
     Route: 065
  13. CYCLOPHOSPHAMIDE [Suspect]
     Active Substance: CYCLOPHOSPHAMIDE
     Dosage: STRENGTH: 2000 MG/ VIAL
     Route: 042
  14. CYCLOPHOSPHAMIDE [Suspect]
     Active Substance: CYCLOPHOSPHAMIDE
     Dosage: UNK
     Route: 065
  15. RITUXIMAB [Suspect]
     Active Substance: RITUXIMAB
     Indication: Immunosuppressant drug therapy
     Dosage: UNK
     Route: 041
  16. RITUXIMAB [Suspect]
     Active Substance: RITUXIMAB
     Dosage: UNK
     Route: 041
  17. VINCRISTINE SULFATE [Suspect]
     Active Substance: VINCRISTINE SULFATE
     Indication: Immunosuppressant drug therapy
     Dosage: DOSAGE FORM: NOT SPECIFIED
     Route: 065
  18. VINCRISTINE SULFATE [Suspect]
     Active Substance: VINCRISTINE SULFATE
     Indication: Product used for unknown indication
     Dosage: DOSAGE FORM: NOT SPECIFIED
     Route: 065
  19. CYCLOSPORINE [Suspect]
     Active Substance: CYCLOSPORINE
     Indication: Product used for unknown indication
     Dosage: DOSAGE FORM: NOT SPECIFIED
     Route: 065
  20. CYCLOSPORINE [Suspect]
     Active Substance: CYCLOSPORINE
     Dosage: DOSAGE FORM: NOT SPECIFIED
     Route: 065
  21. CYCLOPHOSPHAMIDE [Suspect]
     Active Substance: CYCLOPHOSPHAMIDE
     Indication: Immunosuppressant drug therapy
     Dosage: DOSAGE FORM: NOT SPECIFIED
     Route: 065
  22. CYCLOPHOSPHAMIDE [Suspect]
     Active Substance: CYCLOPHOSPHAMIDE
     Dosage: DOSAGE FORM: NOT SPECIFIED
     Route: 065
  23. METHYLPREDNISOLONE [Suspect]
     Active Substance: METHYLPREDNISOLONE
     Indication: Acute myeloid leukaemia
     Dosage: UNK
     Route: 065
  24. METHYLPREDNISOLONE [Suspect]
     Active Substance: METHYLPREDNISOLONE
     Indication: Immunosuppressant drug therapy
     Dosage: UNK
     Route: 065
  25. METHYLPREDNISOLONE [Suspect]
     Active Substance: METHYLPREDNISOLONE
     Indication: Product used for unknown indication
  26. ETOPOSIDE [Suspect]
     Active Substance: ETOPOSIDE
     Indication: Immunosuppression
     Dosage: DOSAGE FORM: NOT SPECIFIED
     Route: 065
  27. ETOPOSIDE [Suspect]
     Active Substance: ETOPOSIDE
     Indication: Immunosuppressant drug therapy
     Dosage: DOSAGE FORM: NOT SPECIFIED
     Route: 065
  28. DAUNORUBICIN HYDROCHLORIDE [Suspect]
     Active Substance: DAUNORUBICIN HYDROCHLORIDE
     Indication: Immunosuppressant drug therapy
     Dosage: UNK
     Route: 042
  29. DAUNORUBICIN HYDROCHLORIDE [Suspect]
     Active Substance: DAUNORUBICIN HYDROCHLORIDE
     Indication: Antifungal prophylaxis
     Dosage: UNK
     Route: 065
  30. DAUNORUBICIN HYDROCHLORIDE [Suspect]
     Active Substance: DAUNORUBICIN HYDROCHLORIDE
     Dosage: UNK
     Route: 042
  31. DAUNORUBICIN HYDROCHLORIDE [Suspect]
     Active Substance: DAUNORUBICIN HYDROCHLORIDE
     Dosage: UNK
     Route: 065
  32. CYTARABINE [Suspect]
     Active Substance: CYTARABINE
     Indication: Acute myeloid leukaemia
     Dosage: UNK
     Route: 065
  33. CYTARABINE [Suspect]
     Active Substance: CYTARABINE
     Indication: Immunosuppressant drug therapy
     Dosage: UNK
     Route: 065
  34. CYTARABINE [Suspect]
     Active Substance: CYTARABINE
     Indication: Acute myeloid leukaemia
     Dosage: UNK
     Route: 065
  35. CYTARABINE [Suspect]
     Active Substance: CYTARABINE
     Indication: Immunosuppressant drug therapy
     Dosage: UNK
     Route: 065

REACTIONS (10)
  - Drug ineffective [Fatal]
  - Central nervous system fungal infection [Fatal]
  - Aspergillus infection [Fatal]
  - Drug resistance [Fatal]
  - Lower respiratory tract infection fungal [Fatal]
  - Death [Fatal]
  - Systemic mycosis [Fatal]
  - Product use in unapproved indication [Fatal]
  - Fungal infection [Fatal]
  - Neoplasm progression [Fatal]
